FAERS Safety Report 9630966 (Version 1)
Quarter: 2013Q4

REPORT INFORMATION
  Report Type: Report from Study
  Country: US (occurrence: US)
  Receive Date: 20131018
  Receipt Date: 20131018
  Transmission Date: 20140711
  Serious: Yes (Hospitalization, Other)
  Sender: FDA-Public Use
  Company Number: US-JNJFOC-20131007034

PATIENT
  Age: 73 Year
  Sex: Male

DRUGS (1)
  1. NUCYNTA [Suspect]
     Indication: PRODUCT USED FOR UNKNOWN INDICATION
     Dosage: 20 MG 4 DOSES
     Route: 065

REACTIONS (14)
  - Suicide attempt [Recovering/Resolving]
  - Toxicity to various agents [Recovering/Resolving]
  - Intentional overdose [Recovering/Resolving]
  - Bradycardia [Recovering/Resolving]
  - Hypotension [Recovering/Resolving]
  - Depressed level of consciousness [Recovering/Resolving]
  - Respiratory depression [Recovering/Resolving]
  - Oxygen saturation decreased [Recovering/Resolving]
  - Miosis [Recovering/Resolving]
  - Opiates positive [Recovering/Resolving]
  - Drug screen positive [Recovering/Resolving]
  - Somnolence [Recovering/Resolving]
  - Lethargy [Recovering/Resolving]
  - Pupillary reflex impaired [Recovering/Resolving]
